FAERS Safety Report 8953667 (Version 1)
Quarter: 2012Q4

REPORT INFORMATION
  Report Type: 
  Country: US (occurrence: US)
  Receive Date: 20121206
  Receipt Date: 20121206
  Transmission Date: 20130627
  Serious: Yes (Hospitalization)
  Sender: FDA-Public Use
  Company Number: US-ASTRAZENECA-2012SE81676

PATIENT
  Age: 53 Year
  Sex: Male
  Weight: 63.5 kg

DRUGS (7)
  1. SEROQUEL [Suspect]
     Indication: SLEEP DISORDER
     Route: 048
  2. SEROQUEL [Suspect]
     Indication: SUICIDE ATTEMPT
     Route: 048
  3. SEROQUEL [Suspect]
     Indication: SLEEP DISORDER
     Route: 048
  4. SEROQUEL [Suspect]
     Indication: SUICIDE ATTEMPT
     Route: 048
  5. SEROQUEL [Suspect]
     Indication: SLEEP DISORDER
     Dosage: BID
     Route: 048
     Dates: start: 2011, end: 201209
  6. SEROQUEL [Suspect]
     Indication: SUICIDE ATTEMPT
     Dosage: BID
     Route: 048
     Dates: start: 2011, end: 201209
  7. NORTRIPTYLINE [Concomitant]

REACTIONS (4)
  - Suicidal ideation [Unknown]
  - Alcoholism [Unknown]
  - Drug ineffective [Unknown]
  - Off label use [Unknown]
